FAERS Safety Report 9057664 (Version 1)
Quarter: 2013Q1

REPORT INFORMATION
  Report Type: Spontaneous
  Country: US (occurrence: None)
  Receive Date: 20130204
  Receipt Date: 20130204
  Transmission Date: 20140127
  Serious: Yes (Hospitalization)
  Sender: FDA-Public Use
  Company Number: None

PATIENT
  Age: 59 Year
  Sex: Male
  Weight: 91.6 kg

DRUGS (2)
  1. ARIPIPRAZOLE [Suspect]
     Indication: DEPRESSION
     Dosage: 30 MG EVERY DAY PO
     Route: 048
     Dates: start: 20121101, end: 20130115
  2. ARIPIPRAZOLE [Suspect]
     Indication: ANXIETY
     Dosage: 30 MG EVERY DAY PO
     Route: 048
     Dates: start: 20121101, end: 20130115

REACTIONS (3)
  - Vision blurred [None]
  - Depression [None]
  - Suicidal ideation [None]
